FAERS Safety Report 13938745 (Version 2)
Quarter: 2017Q3

REPORT INFORMATION
  Report Type: Spontaneous
  Country: JP (occurrence: JP)
  Receive Date: 20170906
  Receipt Date: 20170918
  Transmission Date: 20171127
  Serious: Yes (Other)
  Sender: FDA-Public Use
  Company Number: JP-ROCHE-1988626

PATIENT
  Age: 76 Year
  Sex: Male
  Weight: 56 kg

DRUGS (14)
  1. AVASTIN [Suspect]
     Active Substance: BEVACIZUMAB
     Indication: COLON CANCER
     Route: 041
     Dates: start: 20161005, end: 20170413
  2. PRIMPERAN [Concomitant]
     Active Substance: METOCLOPRAMIDE HYDROCHLORIDE
     Dosage: TAKING AFTER CHEMOTHERAPY FOR THREE DAYS
     Route: 048
  3. ELPLAT [Suspect]
     Active Substance: OXALIPLATIN
     Indication: COLON CANCER
     Route: 041
     Dates: start: 20161005, end: 20170413
  4. DECADRON [Concomitant]
     Active Substance: DEXAMETHASONE
     Dosage: TAKING AFTER CHEMOTHERAPY FOR THREE DAYS
     Route: 048
  5. MYSER (JAPAN) [Concomitant]
     Dosage: DOSAGE IS UNCERTAIN.
     Route: 003
     Dates: start: 20170511
  6. MUCOSTA [Concomitant]
     Active Substance: REBAMIPIDE
     Dosage: TAKING AFTER CHEMOTHERAPY FOR THREE DAYS
     Route: 048
  7. PANTETHINE [Concomitant]
     Active Substance: PANTETHINE
     Route: 048
     Dates: start: 20161117
  8. NU-LOTAN [Concomitant]
     Active Substance: LOSARTAN POTASSIUM
     Route: 048
     Dates: start: 20161117, end: 20170713
  9. FERROUS SULFATE. [Concomitant]
     Active Substance: FERROUS SULFATE
     Route: 048
     Dates: start: 20161208, end: 20170713
  10. AMLODIPINE [Concomitant]
     Active Substance: AMLODIPINE BESYLATE
     Route: 048
     Dates: start: 20161208
  11. XELODA [Suspect]
     Active Substance: CAPECITABINE
     Indication: COLON CANCER
     Dosage: 2 WEEKS ADMINISTRATION FOLLOWED BY 1 WEEK REST
     Route: 048
     Dates: start: 20161005, end: 20170427
  12. HIRUDOID (HEPARINOIDS) [Concomitant]
     Dosage: 2-3 TIMES A DAY?DOSAGE IS UNCERTAIN.
     Route: 003
     Dates: start: 20161014
  13. PYDOXAL [Concomitant]
     Active Substance: PYRIDOXAL
     Route: 048
     Dates: start: 20161006
  14. MAGMITT [Concomitant]
     Active Substance: MAGNESIUM OXIDE
     Route: 048
     Dates: start: 20161117

REACTIONS (1)
  - Lung disorder [Recovering/Resolving]

NARRATIVE: CASE EVENT DATE: 20170116
